FAERS Safety Report 5372768-1 (Version None)
Quarter: 2007Q2

REPORT INFORMATION
  Report Type: 
  Country: None (occurrence: None)
  Receive Date: 20070626
  Receipt Date: 20070612
  Transmission Date: 20071010
  Serious: Yes (Hospitalization)
  Sender: FDA-Public Use
  Company Number: 230003N07DEU

PATIENT
  Age: 68 Year
  Sex: Female
  Weight: 90 kg

DRUGS (6)
  1. REBIF [Suspect]
     Indication: MULTIPLE SCLEROSIS
     Dosage: 44 MCG, 3 IN 1 WEEKS, SUBCUTANEOUS
     Route: 058
     Dates: start: 20060224
  2. AMITRIPTYLINE /00002201/ [Concomitant]
  3. PREGABALIN [Concomitant]
  4. LEKOVIT CA [Concomitant]
  5. TOCOPHEROL /00110501/ [Concomitant]
  6. B-KOMPLEX [Concomitant]

REACTIONS (1)
  - COLON CANCER [None]
